FAERS Safety Report 21994533 (Version 1)
Quarter: 2023Q1

REPORT INFORMATION
  Report Type: Report from Study
  Country: CN (occurrence: CN)
  Receive Date: 20230215
  Receipt Date: 20230215
  Transmission Date: 20230418
  Serious: Yes (Other)
  Sender: FDA-Public Use
  Company Number: CN-JNJFOC-20230213148

PATIENT

DRUGS (12)
  1. BEDAQUILINE [Suspect]
     Active Substance: BEDAQUILINE
     Indication: Tuberculosis
     Route: 048
  2. BEDAQUILINE [Suspect]
     Active Substance: BEDAQUILINE
     Route: 048
  3. LEVOFLOXACIN [Suspect]
     Active Substance: LEVOFLOXACIN
     Indication: Tuberculosis
     Dosage: LESS THAN 45 KG PATIENT RECEIVED 750 MG QD
     Route: 065
  4. LEVOFLOXACIN [Suspect]
     Active Substance: LEVOFLOXACIN
     Dosage: PATIENTS }45 KG RECEIVED 1000 MG QD.
     Route: 065
  5. CLOFAZIMINE [Suspect]
     Active Substance: CLOFAZIMINE
     Indication: Tuberculosis
     Route: 065
  6. LINEZOLID [Suspect]
     Active Substance: LINEZOLID
     Indication: Tuberculosis
     Route: 065
  7. CYCLOSERINE [Suspect]
     Active Substance: CYCLOSERINE
     Indication: Tuberculosis
     Dosage: PATIENTS LESS THAN 45 KG RECEIVED 250 MG BID AND PATIENTS GREATER THAN 45 KG RECEIVED 250 MG IN THE
     Route: 065
  8. PROTIONAMIDE [Suspect]
     Active Substance: PROTIONAMIDE
     Indication: Tuberculosis
     Dosage: PATIENTS LESS THAN 45 KG RECEIVED 300 MG BID
     Route: 065
  9. PROTIONAMIDE [Suspect]
     Active Substance: PROTIONAMIDE
     Dosage: PATIENTS GREATER THAN 45 KG RECEIVED 400 MG BID.
     Route: 065
  10. ETHAMBUTOL [Suspect]
     Active Substance: ETHAMBUTOL HYDROCHLORIDE
     Indication: Tuberculosis
     Dosage: PATIENTS LESS THAN 45 KG RECEIVED 750 MG QD
     Route: 065
  11. ETHAMBUTOL [Suspect]
     Active Substance: ETHAMBUTOL HYDROCHLORIDE
     Dosage: PATIENTS GREATER THAN 45 KG RECEIVED 1000 MG QD.
     Route: 065
  12. VITAMIN B6 [Concomitant]
     Active Substance: PYRIDOXINE HYDROCHLORIDE
     Indication: Prophylaxis

REACTIONS (7)
  - Electrocardiogram QT prolonged [Unknown]
  - Optic neuritis [Unknown]
  - Myelosuppression [Unknown]
  - Suicidal ideation [Unknown]
  - Mental disorder [Unknown]
  - Hepatic failure [Unknown]
  - Treatment failure [Unknown]
